FAERS Safety Report 7645840-0 (Version None)
Quarter: 2011Q3

REPORT INFORMATION
  Report Type: 
  Country: None (occurrence: None)
  Receive Date: 20110729
  Receipt Date: 20110718
  Transmission Date: 20111222
  Serious: Yes (Other)
  Sender: FDA-Public Use
  Company Number: PHHY2011BR65706

PATIENT
  Sex: Male

DRUGS (4)
  1. TEGRETOL-XR [Suspect]
     Dosage: 400 MG, UNK
     Route: 048
  2. TRILEPTAL [Suspect]
     Dosage: 300 MG, (1 TABLET IN THE EVENING )
     Route: 048
  3. EXODUS [Suspect]
     Dosage: UNK UKN, UNK
  4. TRILEPTAL [Suspect]
     Indication: CONVULSION
     Dosage: 600 MG, (1 TABLET IN THE MORNING AND 1 TABLET AT NIGHT)
     Route: 048

REACTIONS (8)
  - BLOOD PRESSURE INCREASED [None]
  - NERVOUSNESS [None]
  - EJACULATION FAILURE [None]
  - HAEMATEMESIS [None]
  - DYSPNOEA [None]
  - THERAPEUTIC RESPONSE DECREASED [None]
  - SWOLLEN TONGUE [None]
  - STRESS [None]
